FAERS Safety Report 9708595 (Version 2)
Quarter: 2013Q4

REPORT INFORMATION
  Report Type: Report from Study
  Country: CA (occurrence: CA)
  Receive Date: 20131125
  Receipt Date: 20131218
  Transmission Date: 20140711
  Serious: Yes (Disabling, Other)
  Sender: FDA-Public Use
  Company Number: CA-ABBVIE-13P-028-1171278-00

PATIENT
  Sex: Male
  Weight: 84.9 kg

DRUGS (5)
  1. HUMIRA [Suspect]
     Indication: CROHN^S DISEASE
     Route: 058
     Dates: start: 20130626, end: 20130925
  2. HUMIRA [Suspect]
     Route: 058
     Dates: start: 20131204
  3. CHOLESTYRAMINE [Concomitant]
     Indication: CROHN^S DISEASE
     Route: 048
     Dates: start: 1998
  4. CELEXA [Concomitant]
     Indication: ANXIETY
     Route: 048
  5. NEXIUM [Concomitant]
     Indication: CROHN^S DISEASE
     Route: 048

REACTIONS (1)
  - Anal fistula [Recovering/Resolving]
